FAERS Safety Report 8183717-5 (Version None)
Quarter: 2012Q1

REPORT INFORMATION
  Report Type: 
  Country: None (occurrence: None)
  Receive Date: 20120305
  Receipt Date: 20120227
  Transmission Date: 20120608
  Serious: Yes (Hospitalization)
  Sender: FDA-Public Use
  Company Number: PHEH2012US003392

PATIENT
  Sex: Female
  Weight: 18.4 kg

DRUGS (3)
  1. EXJADE [Suspect]
     Indication: SICKLE CELL ANAEMIA
     Dosage: 375 MG, DAILY
     Route: 048
     Dates: start: 20110627
  2. IBUPROFEN [Concomitant]
     Indication: ABDOMINAL PAIN
     Dosage: 150 MG, QD
     Route: 048
  3. EXJADE [Suspect]
     Indication: HAEMOSIDEROSIS

REACTIONS (10)
  - ABDOMINAL PAIN [None]
  - PAIN [None]
  - DEHYDRATION [None]
  - DIARRHOEA [None]
  - BLOOD UREA INCREASED [None]
  - PHARYNGITIS STREPTOCOCCAL [None]
  - SICKLE CELL ANAEMIA WITH CRISIS [None]
  - HAEMATEMESIS [None]
  - PYREXIA [None]
  - WHITE BLOOD CELL COUNT INCREASED [None]
